FAERS Safety Report 5943092-0 (Version None)
Quarter: 2008Q4

REPORT INFORMATION
  Report Type: 
  Country: None (occurrence: None)
  Receive Date: 20081106
  Receipt Date: 20081030
  Transmission Date: 20090506
  Serious: Yes (Death, Life-Threatening, Hospitalization, Other)
  Sender: FDA-Public Use
  Company Number: CN-BAYER-200829466GPV

PATIENT
  Age: 81 Year
  Sex: Male

DRUGS (1)
  1. AVELOX [Suspect]
     Indication: BRONCHITIS
     Dosage: TOTAL DAILY DOSE: 400 MG  UNIT DOSE: 400 MG
     Route: 048
     Dates: start: 20080501, end: 20080501

REACTIONS (4)
  - ASTHMA [None]
  - DYSPNOEA [None]
  - RESPIRATORY FAILURE [None]
  - TACHYCARDIA [None]
